FAERS Safety Report 14282387 (Version 1)
Quarter: 2017Q4

REPORT INFORMATION
  Report Type: Spontaneous
  Country: US (occurrence: US)
  Receive Date: 20171213
  Receipt Date: 20171213
  Transmission Date: 20180321
  Serious: Yes (Other)
  Sender: FDA-Public Use
  Company Number: US-TEVA-2017-US-831570

PATIENT
  Sex: Male
  Weight: 23 kg

DRUGS (3)
  1. OMEPRAZOLE. [Concomitant]
     Active Substance: OMEPRAZOLE
     Indication: GASTROOESOPHAGEAL REFLUX DISEASE
  2. PRIMSOL [Concomitant]
     Active Substance: TRIMETHOPRIM HYDROCHLORIDE
     Indication: PROPHYLAXIS
  3. PROGLYCEM [Suspect]
     Active Substance: DIAZOXIDE
     Indication: HYPERINSULINISM
     Dosage: 140 MILLIGRAM DAILY;
     Dates: start: 201108

REACTIONS (3)
  - Creatinine renal clearance decreased [Not Recovered/Not Resolved]
  - Blood urea decreased [Not Recovered/Not Resolved]
  - Renal failure [Unknown]

NARRATIVE: CASE EVENT DATE: 2015
